FAERS Safety Report 6936800-3 (Version None)
Quarter: 2010Q3

REPORT INFORMATION
  Report Type: 
  Country: None (occurrence: None)
  Receive Date: 20100818
  Receipt Date: 20100805
  Transmission Date: 20110219
  Serious: Yes (Hospitalization)
  Sender: FDA-Public Use
  Company Number: 2010SP001771

PATIENT
  Age: 74 Year
  Sex: Male
  Weight: 65.4 kg

DRUGS (9)
  1. ARFORMOTEROL TARTRATE [Suspect]
     Indication: CHRONIC OBSTRUCTIVE PULMONARY DISEASE
     Dosage: ; BID; INHALATION
     Route: 055
     Dates: start: 20100608, end: 20100617
  2. ARFORMOTEROL TARTRATE [Suspect]
     Indication: CHRONIC OBSTRUCTIVE PULMONARY DISEASE
     Dosage: ; BID; INHALATION
     Route: 055
     Dates: start: 20100621
  3. PREDNISONE [Concomitant]
  4. DIOVAN /01319601/ [Concomitant]
  5. BETAMETHASON /00008503/ [Concomitant]
  6. FLOVENT [Concomitant]
  7. VENTOLIN [Concomitant]
  8. ADVAIR DISKUS 100/50 [Concomitant]
  9. PROAIR HFA [Concomitant]

REACTIONS (3)
  - CHRONIC OBSTRUCTIVE PULMONARY DISEASE [None]
  - CONDITION AGGRAVATED [None]
  - PNEUMONIA [None]
